FAERS Safety Report 5918973-4 (Version None)
Quarter: 2008Q3

REPORT INFORMATION
  Report Type: 
  Country: None (occurrence: None)
  Receive Date: 20080909
  Receipt Date: 20070221
  Transmission Date: 20090109
  Serious: Yes (Death, Hospitalization, Other)
  Sender: FDA-Public Use
  Company Number: 163-20785-04010445

PATIENT
  Age: 67 Year
  Sex: Female
  Weight: 135.1719 kg

DRUGS (21)
  1. THALOMID [Suspect]
     Indication: ACUTE MYELOID LEUKAEMIA
     Dosage: 100-200 MG, QHS, ORAL
     Route: 048
     Dates: start: 20031002, end: 20031007
  2. FLUDARABNIE (FLUDARABINE) [Suspect]
     Indication: ACUTE MYELOID LEUKAEMIA
     Dosage: 30 MG, QD X 5, INTRAVENOUS
     Route: 042
     Dates: start: 20030930, end: 20031004
  3. TOPOTECAN (TOPOTECAN) [Suspect]
     Indication: ACUTE MYELOID LEUKAEMIA
     Dosage: 1.7 MG, QD X 3, INTRAVENOUS
     Route: 042
     Dates: start: 20030930, end: 20031003
  4. CARBOPLATIN [Suspect]
     Indication: ACUTE MYELOID LEUKAEMIA
     Dosage: 205 MG, QD X 5, INTRAVENOUS
     Route: 042
     Dates: start: 20030930, end: 20031005
  5. FUROSEMIDE [Concomitant]
  6. LANSOPRAZOLE [Concomitant]
  7. MONTELUKAST SODIUM [Concomitant]
  8. MULTIVITAMIN [Concomitant]
  9. MORPHINE [Concomitant]
  10. ZOFRAN [Concomitant]
  11. PYRIDOXINE (PYRIDOXINE) [Concomitant]
  12. TERCONAZOLE (TERCONAZOLE) (CREAM) [Concomitant]
  13. ACETAMINOPHEN [Concomitant]
  14. ALLOPURINOL [Concomitant]
  15. ALPRAZOLAM [Concomitant]
  16. AMLODIPINE (AMLODIPINE) [Concomitant]
  17. BENAZEPRIL (BENAZEPRIL) [Concomitant]
  18. CHLORHEXIDINE (CHLORHEXIDINE) [Concomitant]
  19. CLOTRIMAZOLE (CLOTRIMAZOLE) (TROCHE) [Concomitant]
  20. DEXAMETHASONE TAB [Concomitant]
  21. BENADRYL [Concomitant]

REACTIONS (11)
  - BACK PAIN [None]
  - CARDIAC ARREST [None]
  - DIVERTICULAR PERFORATION [None]
  - HYPOTENSION [None]
  - MOTOR DYSFUNCTION [None]
  - NEUTROPENIA [None]
  - PLATELET COUNT DECREASED [None]
  - PYREXIA [None]
  - SEPSIS [None]
  - VENTRICULAR FIBRILLATION [None]
  - WHITE BLOOD CELL COUNT DECREASED [None]
